FAERS Safety Report 12976022 (Version 1)
Quarter: 2016Q4

REPORT INFORMATION
  Report Type: Spontaneous
  Country: US (occurrence: US)
  Receive Date: 20161126
  Receipt Date: 20161126
  Transmission Date: 20170207
  Serious: Yes (Other)
  Sender: FDA-Public Use
  Company Number: US-ASTRAZENECA-2015SE90883

PATIENT
  Sex: Female
  Weight: 63.5 kg

DRUGS (5)
  1. PROAIR HFA [Concomitant]
     Active Substance: ALBUTEROL SULFATE
     Indication: CHRONIC OBSTRUCTIVE PULMONARY DISEASE
     Dosage: TWO TIMES A DAY
     Route: 055
     Dates: start: 201501
  2. TUDORZA PRESSAIR [Suspect]
     Active Substance: ACLIDINIUM BROMIDE
     Indication: CHRONIC OBSTRUCTIVE PULMONARY DISEASE
     Dosage: 400 MCG ONE INHALATION TWICE A DAY
     Route: 055
     Dates: start: 201501
  3. LEBALBUTEROL [Concomitant]
     Indication: CHRONIC OBSTRUCTIVE PULMONARY DISEASE
  4. BREO ELLIPTA [Concomitant]
     Active Substance: FLUTICASONE FUROATE\VILANTEROL TRIFENATATE
     Indication: CHRONIC OBSTRUCTIVE PULMONARY DISEASE
     Dosage: 100/25 ONCE A DAY
     Route: 055
     Dates: start: 2014
  5. OXYGEN. [Concomitant]
     Active Substance: OXYGEN
     Dosage: AT BEDTIME AND DURING THE NIGHT AND ANYTIME FOR OXYGEN LEVEL DROPS TO 89 OR LESS FOR ONE MINUTE.

REACTIONS (4)
  - Intentional product use issue [Unknown]
  - Device malfunction [Unknown]
  - Malignant neoplasm progression [Unknown]
  - Lung carcinoma cell type unspecified recurrent [Unknown]
